FAERS Safety Report 7400527-4 (Version None)
Quarter: 2011Q2

REPORT INFORMATION
  Report Type: 
  Country: None (occurrence: None)
  Receive Date: 20110407
  Receipt Date: 20110331
  Transmission Date: 20111010
  Serious: Yes (Hospitalization)
  Sender: FDA-Public Use
  Company Number: DE-PFIZER INC-2011071535

PATIENT
  Age: 66 Year
  Sex: Female

DRUGS (10)
  1. LYRICA [Suspect]
     Dosage: 150 MG, 1X/DAY
     Route: 048
     Dates: start: 20100819
  2. DIPIPERON [Concomitant]
     Dosage: 60 MG, 1X/DAY
     Route: 048
     Dates: start: 20090101
  3. LYRICA [Suspect]
     Dosage: 50 MG, 1X/DAY
     Route: 048
     Dates: start: 20100724, end: 20100804
  4. MIRTAZAPINE [Concomitant]
     Dosage: 45 MG, 1X/DAY
     Route: 048
     Dates: start: 20090801
  5. CYMBALTA [Concomitant]
     Dosage: 120 MG, 1X/DAY
     Route: 048
     Dates: start: 20100304, end: 20101006
  6. LYRICA [Suspect]
     Dosage: 100 MG, 1X/DAY
     Route: 048
     Dates: start: 20100805, end: 20100818
  7. SYMBICORT [Concomitant]
     Dosage: 2 DF, 1X/DAY
     Route: 048
     Dates: start: 20090101
  8. ZOLPIDEM [Concomitant]
     Dosage: 5 MG, 1X/DAY
     Route: 048
     Dates: start: 20090101
  9. TORASEMIDE [Concomitant]
     Dosage: 30 MG, 1X/DAY
     Route: 048
     Dates: start: 20090101
  10. ALENDRONIC ACID [Concomitant]
     Dosage: 70 MG, WEEKLY
     Dates: start: 20090101

REACTIONS (1)
  - PANCYTOPENIA [None]
